FAERS Safety Report 5126723-7 (Version None)
Quarter: 2006Q4

REPORT INFORMATION
  Report Type: 
  Country: None (occurrence: None)
  Receive Date: 20061012
  Receipt Date: 20061012
  Transmission Date: 20070319
  Serious: No
  Sender: FDA-Public Use
  Company Number: None

PATIENT
  Sex: Male
  Weight: 55.4 kg

DRUGS (3)
  1. FLUOROURACIL [Suspect]
     Dosage: 670 MG
     Dates: end: 20060825
  2. LEUCOVORIN CALCIUM [Suspect]
     Dosage: 670 MG
     Dates: end: 20060825
  3. ELOXATIN [Suspect]
     Dosage: 145 MG
     Dates: end: 20060825

REACTIONS (1)
  - NEUTROPHIL COUNT ABNORMAL [None]
